FAERS Safety Report 9727630 (Version 5)
Quarter: 2014Q1

REPORT INFORMATION
  Report Type: Spontaneous
  Country: FR (occurrence: FR)
  Receive Date: 20131203
  Receipt Date: 20140304
  Transmission Date: 20141002
  Serious: Yes (Congenital Anomaly, Other)
  Sender: FDA-Public Use
  Company Number: FR-ABBVIE-11P-056-0717806-00

PATIENT
  Sex: Male

DRUGS (1)
  1. DEPAKINE CHRONO [Suspect]
     Indication: MATERNAL EXPOSURE TIMING UNSPECIFIED
     Route: 064

REACTIONS (9)
  - Chromosomal deletion [Unknown]
  - Autism [Unknown]
  - Foetal exposure during pregnancy [Unknown]
  - Abnormal behaviour [Unknown]
  - Congenital anomaly [Unknown]
  - Drug withdrawal syndrome neonatal [Unknown]
  - Childhood psychosis [Unknown]
  - Emotional disorder of childhood [Unknown]
  - Educational problem [Unknown]
